FAERS Safety Report 11839188 (Version 1)
Quarter: 2015Q4

REPORT INFORMATION
  Report Type: Report from Study
  Country: CA (occurrence: CA)
  Receive Date: 20151216
  Receipt Date: 20151216
  Transmission Date: 20160305
  Serious: Yes (Other)
  Sender: FDA-Public Use
  Company Number: CA-AMGEN-CANSL2015132265

PATIENT
  Age: 79 Year
  Sex: Female

DRUGS (1)
  1. PROLIA [Suspect]
     Active Substance: DENOSUMAB
     Indication: PRODUCT USED FOR UNKNOWN INDICATION
     Dosage: 60 MG, Q6MO
     Route: 058

REACTIONS (8)
  - Renal ischaemia [Unknown]
  - Loss of consciousness [Unknown]
  - Knee arthroplasty [Unknown]
  - Intestinal ulcer [Unknown]
  - Renal injury [Unknown]
  - Gastric haemorrhage [Unknown]
  - Post procedural haemorrhage [Unknown]
  - Activities of daily living impaired [Unknown]

NARRATIVE: CASE EVENT DATE: 2014
